FAERS Safety Report 4354607-0 (Version None)
Quarter: 2004Q2

REPORT INFORMATION
  Report Type: 
  Country: None (occurrence: None)
  Receive Date: 20040506
  Receipt Date: 20040506
  Transmission Date: 20050107
  Serious: Yes (Hospitalization)
  Sender: FDA-Public Use
  Company Number: None

PATIENT
  Age: 76 Year
  Sex: Female
  Weight: 50.8029 kg

DRUGS (3)
  1. LETROZOLE 2.5 MG NOVARTIS [Suspect]
     Indication: OVARIAN CANCER METASTATIC
     Dosage: 2.5 MG QD ORAL
     Route: 048
     Dates: start: 20040420, end: 20040503
  2. PLAVIX [Concomitant]
  3. STENTS [Concomitant]

REACTIONS (1)
  - CELLULITIS [None]
